FAERS Safety Report 6182867-2 (Version None)
Quarter: 2009Q2

REPORT INFORMATION
  Report Type: 
  Country: None (occurrence: None)
  Receive Date: 20090507
  Receipt Date: 20090430
  Transmission Date: 20091009
  Serious: Yes (Hospitalization)
  Sender: FDA-Public Use
  Company Number: GB-BRISTOL-MYERS SQUIBB COMPANY-14612824

PATIENT
  Age: 19 Year
  Sex: Male

DRUGS (2)
  1. ABILIFY [Suspect]
  2. OLANZAPINE [Suspect]
     Dosage: STARTED WITH 5MG, INCREASED TO 20 MG OVER 3-4 WEEKS, AND REMAINED ON THIS DOSE FOR THREE MONTHS

REACTIONS (1)
  - PSYCHOTIC DISORDER [None]
